FAERS Safety Report 9162160 (Version 1)
Quarter: 2013Q1

REPORT INFORMATION
  Report Type: Spontaneous
  Country: BR (occurrence: BR)
  Receive Date: 20130314
  Receipt Date: 20130314
  Transmission Date: 20140127
  Serious: Yes (Other)
  Sender: FDA-Public Use
  Company Number: PHHY2013BR024745

PATIENT
  Sex: Male

DRUGS (3)
  1. TEGRETOL CR [Suspect]
     Indication: EPILEPSY
     Dosage: 1 DF, BID
     Route: 048
  2. RIVOTRIL [Suspect]
     Indication: SLEEP DISORDER
     Dosage: 15 DRP, DAILY
     Route: 048
  3. LAMITOR [Suspect]
     Indication: EPILEPSY
     Dosage: 1 DF, TID
     Route: 048
     Dates: start: 200905

REACTIONS (1)
  - Drug dependence [Not Recovered/Not Resolved]
